FAERS Safety Report 5136639-8 (Version None)
Quarter: 2006Q4

REPORT INFORMATION
  Report Type: 
  Country: None (occurrence: None)
  Receive Date: 20061027
  Receipt Date: 20061017
  Transmission Date: 20070319
  Serious: Yes (Hospitalization, Other)
  Sender: FDA-Public Use
  Company Number: JP-ABBOTT-06P-087-0347380-00

PATIENT
  Age: 77 Year
  Sex: Female

DRUGS (10)
  1. AKINETON [Suspect]
     Indication: DEPRESSION
  2. AKINETON [Suspect]
  3. DIAZEPAM [Suspect]
     Indication: DRUG USE FOR UNKNOWN INDICATION
  4. DIAZEPAM [Suspect]
  5. TRIHEXYPHENIDYL HCL [Suspect]
     Indication: DRUG USE FOR UNKNOWN INDICATION
  6. TRIHEXYPHENIDYL HCL [Suspect]
  7. PROMETHAZINE [Concomitant]
     Indication: DRUG USE FOR UNKNOWN INDICATION
  8. PROMETHAZINE [Concomitant]
  9. DONEPEZIL HCL [Concomitant]
     Indication: DEMENTIA
  10. SULPIRIDE [Concomitant]
     Indication: DRUG USE FOR UNKNOWN INDICATION

REACTIONS (3)
  - ABNORMAL BEHAVIOUR [None]
  - COGNITIVE DISORDER [None]
  - DELIRIUM [None]
